FAERS Safety Report 22177980 (Version 1)
Quarter: 2023Q2

REPORT INFORMATION
  Report Type: Spontaneous
  Country: FR (occurrence: FR)
  Receive Date: 20230405
  Receipt Date: 20230405
  Transmission Date: 20230722
  Serious: Yes (Life-Threatening)
  Sender: FDA-Public Use
  Company Number: None

PATIENT
  Age: 66 Year
  Sex: Male
  Weight: 88 kg

DRUGS (6)
  1. SOLU-MEDROL [Suspect]
     Active Substance: METHYLPREDNISOLONE SODIUM SUCCINATE
     Indication: General anaesthesia
     Dosage: 1 DF, SINGLE
     Route: 042
     Dates: start: 200903, end: 200903
  2. ACUPAN [Suspect]
     Active Substance: NEFOPAM HYDROCHLORIDE
     Indication: General anaesthesia
     Dosage: 1 DF, SINGLE
     Route: 042
     Dates: start: 200903, end: 200903
  3. SUFENTANIL [Suspect]
     Active Substance: SUFENTANIL
     Indication: General anaesthesia
     Dosage: 1 DF, SINGLE
     Route: 042
     Dates: start: 200903, end: 200903
  4. DIPRIVAN [Suspect]
     Active Substance: PROPOFOL
     Indication: General anaesthesia
     Dosage: 1 DF, SINGLE
     Route: 042
     Dates: start: 200903, end: 200903
  5. MIVACRON [Suspect]
     Active Substance: MIVACURIUM CHLORIDE
     Indication: General anaesthesia
     Dosage: 1 DF, SINGLE
     Route: 042
     Dates: start: 200903, end: 200903
  6. PERFALGAN [Concomitant]
     Active Substance: ACETAMINOPHEN
     Indication: General anaesthesia
     Dosage: 1 DF, SINGLE
     Route: 042
     Dates: start: 200903, end: 200903

REACTIONS (2)
  - Anaphylactic shock [Recovered/Resolved]
  - Off label use [Unknown]

NARRATIVE: CASE EVENT DATE: 20090301
